FAERS Safety Report 24013202 (Version 1)
Quarter: 2024Q2

REPORT INFORMATION
  Report Type: Spontaneous
  Country: US (occurrence: US)
  Receive Date: 20240626
  Receipt Date: 20240626
  Transmission Date: 20240716
  Serious: No
  Sender: FDA-Public Use
  Company Number: US-ELI_LILLY_AND_COMPANY-US202406015358

PATIENT
  Age: 57 Year
  Sex: Female

DRUGS (4)
  1. GALCANEZUMAB [Suspect]
     Active Substance: GALCANEZUMAB
     Indication: Migraine
     Dosage: 120 MG, MONTHLY (1/M)
     Route: 058
  2. GALCANEZUMAB [Suspect]
     Active Substance: GALCANEZUMAB
     Indication: Migraine
     Dosage: 120 MG, MONTHLY (1/M)
     Route: 058
  3. GALCANEZUMAB [Suspect]
     Active Substance: GALCANEZUMAB
     Dosage: 120 MG, MONTHLY (1/M)
     Route: 058
  4. GALCANEZUMAB [Suspect]
     Active Substance: GALCANEZUMAB
     Dosage: 120 MG, MONTHLY (1/M)
     Route: 058

REACTIONS (2)
  - Product dose omission issue [Unknown]
  - Injection site pain [Unknown]
